FAERS Safety Report 5077049-1 (Version None)
Quarter: 2006Q3

REPORT INFORMATION
  Report Type: 
  Country: None (occurrence: None)
  Receive Date: 20060810
  Receipt Date: 20030118
  Transmission Date: 20061208
  Serious: No
  Sender: FDA-Public Use
  Company Number: US-GLAXOSMITHKLINE-A0393591A

PATIENT
  Age: 37 Year
  Sex: Male

DRUGS (4)
  1. PAXIL [Suspect]
     Indication: PANIC ATTACK
     Route: 048
     Dates: start: 20000505, end: 20020205
  2. LEVOXYL [Concomitant]
  3. SYNTHROID [Concomitant]
  4. LOTRISONE [Concomitant]

REACTIONS (10)
  - ANXIETY [None]
  - DEPRESSED MOOD [None]
  - DRUG WITHDRAWAL SYNDROME [None]
  - EUPHORIC MOOD [None]
  - FATIGUE [None]
  - HEADACHE [None]
  - INSOMNIA [None]
  - PALPITATIONS [None]
  - PARAESTHESIA [None]
  - SEXUAL DYSFUNCTION [None]
